FAERS Safety Report 13759464 (Version 2)
Quarter: 2017Q3

REPORT INFORMATION
  Report Type: Spontaneous
  Country: US (occurrence: US)
  Receive Date: 20170717
  Receipt Date: 20170801
  Transmission Date: 20171127
  Serious: Yes (Death, Hospitalization)
  Sender: FDA-Public Use
  Company Number: US-BAUSCH-BL-2017-021193

PATIENT
  Age: 25 Year
  Sex: Female

DRUGS (2)
  1. DILTIAZEM HYDROCHLORIDE. [Suspect]
     Active Substance: DILTIAZEM HYDROCHLORIDE
     Indication: COMPLETED SUICIDE
     Dosage: TOTAL
     Route: 048
  2. METOCLOPRAMIDE. [Suspect]
     Active Substance: METOCLOPRAMIDE
     Indication: COMPLETED SUICIDE
     Dosage: TOTAL
     Route: 065

REACTIONS (1)
  - Drug level increased [Fatal]

NARRATIVE: CASE EVENT DATE: 1991
